FAERS Safety Report 14869820 (Version 1)
Quarter: 2018Q2

REPORT INFORMATION
  Report Type: Spontaneous
  Country: JP (occurrence: JP)
  Receive Date: 20180509
  Receipt Date: 20180509
  Transmission Date: 20180711
  Serious: Yes (Hospitalization)
  Sender: FDA-Public Use
  Company Number: JP-MYLANLABS-2018M1029913

PATIENT
  Age: 37 Year
  Sex: Female

DRUGS (4)
  1. METHOTREXATE. [Suspect]
     Active Substance: METHOTREXATE
     Indication: INTERVENTIONAL PROCEDURE
     Dosage: LOCAL METHOTREXATE; ADMINISTERED INTO THE GESTATION SAC
     Route: 050
  2. METHOTREXATE. [Suspect]
     Active Substance: METHOTREXATE
     Dosage: LOCAL METHOTREXATE; ADMINISTERED INTO THE PLACENTAL AREA
     Route: 050
  3. POTASSIUM CHLORIDE. [Concomitant]
     Active Substance: POTASSIUM CHLORIDE
     Indication: PRODUCT USED FOR UNKNOWN INDICATION
     Dosage: ADMINISTERED INTO GESTATIONAL SAC
     Route: 050
  4. METHOTREXATE. [Concomitant]
     Active Substance: METHOTREXATE
     Indication: PRODUCT USED FOR UNKNOWN INDICATION
     Dosage: SYSTEMIC METHOTREXATE
     Route: 050

REACTIONS (2)
  - Vascular pseudoaneurysm ruptured [Recovered/Resolved]
  - Vascular pseudoaneurysm [Recovered/Resolved]
